FAERS Safety Report 5079872-6 (Version None)
Quarter: 2006Q3

REPORT INFORMATION
  Report Type: 
  Country: None (occurrence: None)
  Receive Date: 20060809
  Receipt Date: 20060728
  Transmission Date: 20061208
  Serious: Yes (Hospitalization)
  Sender: FDA-Public Use
  Company Number: MEDI-0004834

PATIENT
  Sex: Male

DRUGS (1)
  1. ETHYOL [Suspect]
     Dosage: 1 IN 1 D

REACTIONS (2)
  - INFLUENZA LIKE ILLNESS [None]
  - PYREXIA [None]
